FAERS Safety Report 9257941 (Version 1)
Quarter: 2013Q2

REPORT INFORMATION
  Report Type: Spontaneous
  Country: US (occurrence: None)
  Receive Date: 20130424
  Receipt Date: 20130424
  Transmission Date: 20140414
  Serious: Yes (Hospitalization)
  Sender: FDA-Public Use
  Company Number: None

PATIENT
  Age: 32 Year
  Sex: Female
  Weight: 122.5 kg

DRUGS (2)
  1. CIPROFLOXACIN [Suspect]
  2. PREDNISONE [Concomitant]

REACTIONS (1)
  - Stevens-Johnson syndrome [None]
